FAERS Safety Report 6010616-7 (Version None)
Quarter: 2008Q4

REPORT INFORMATION
  Report Type: 
  Country: None (occurrence: None)
  Receive Date: 20081216
  Receipt Date: 20081203
  Transmission Date: 20090506
  Serious: Yes (Hospitalization, Other)
  Sender: FDA-Public Use
  Company Number: 2008-04478

PATIENT
  Age: 75 Year
  Sex: Male
  Weight: 89 kg

DRUGS (4)
  1. VELCADE [Suspect]
     Indication: MULTIPLE MYELOMA
     Dosage: 1.3 MG/M2, 1 MG
     Dates: start: 20080925, end: 20081130
  2. VELCADE [Suspect]
     Indication: MULTIPLE MYELOMA
     Dosage: 1.3 MG/M2, 1 MG
     Dates: start: 20081201
  3. DOXORUBICIN HCL [Suspect]
     Indication: MULTIPLE MYELOMA
     Dosage: 60 MG, INTRAVENOUS
     Route: 042
     Dates: start: 20080925, end: 20081106
  4. DEXAMETHASONE [Concomitant]

REACTIONS (8)
  - CONSTIPATION [None]
  - DIARRHOEA [None]
  - DIVERTICULUM INTESTINAL [None]
  - GENERAL PHYSICAL HEALTH DETERIORATION [None]
  - HELICOBACTER INFECTION [None]
  - SUBILEUS [None]
  - THROMBOCYTOPENIA [None]
  - WEIGHT DECREASED [None]
